FAERS Safety Report 5304845-5 (Version None)
Quarter: 2007Q2

REPORT INFORMATION
  Report Type: 
  Country: None (occurrence: None)
  Receive Date: 20070423
  Receipt Date: 20070412
  Transmission Date: 20071010
  Serious: Yes (Other)
  Sender: FDA-Public Use
  Company Number: GB-BOEHRINGER INGELHEIM GMBH, GERMANY-2007-DE-02142GD

PATIENT

DRUGS (7)
  1. NEVIRAPINE [Suspect]
     Indication: PROPHYLAXIS
     Route: 015
  2. NEVIRAPINE [Suspect]
     Indication: HUMAN IMMUNODEFICIENCY VIRUS TRANSMISSION
  3. ZIDOVUDINE [Suspect]
     Indication: PROPHYLAXIS
     Route: 015
  4. ZIDOVUDINE [Suspect]
     Indication: HUMAN IMMUNODEFICIENCY VIRUS TRANSMISSION
  5. LAMIVUDINE [Suspect]
     Indication: PROPHYLAXIS
     Route: 015
  6. LAMIVUDINE [Suspect]
     Indication: HUMAN IMMUNODEFICIENCY VIRUS TRANSMISSION
  7. QUININE [Concomitant]
     Indication: PLASMODIUM FALCIPARUM INFECTION
     Route: 042

REACTIONS (3)
  - FAILURE TO THRIVE [None]
  - HEPATOSPLENOMEGALY [None]
  - HIV INFECTION [None]
